FAERS Safety Report 12530010 (Version 1)
Quarter: 2016Q3

REPORT INFORMATION
  Report Type: Spontaneous
  Country: US (occurrence: None)
  Receive Date: 20160705
  Receipt Date: 20160705
  Transmission Date: 20161109
  Serious: Yes (Disabling)
  Sender: FDA-Public Use
  Company Number: None

PATIENT
  Age: 53 Year
  Sex: Female
  Weight: 66.68 kg

DRUGS (1)
  1. LEVOFLOXACIN 750MG. TABLETV, 750 MG [Suspect]
     Active Substance: LEVOFLOXACIN
     Indication: PNEUMONIA
     Route: 048
     Dates: start: 20160529, end: 20160604

REACTIONS (7)
  - Muscle twitching [None]
  - Musculoskeletal pain [None]
  - Asthenia [None]
  - Arthralgia [None]
  - Activities of daily living impaired [None]
  - Fatigue [None]
  - Joint range of motion decreased [None]

NARRATIVE: CASE EVENT DATE: 20160606
